FAERS Safety Report 19432990 (Version 1)
Quarter: 2021Q2

REPORT INFORMATION
  Report Type: Spontaneous
  Country: FR (occurrence: FR)
  Receive Date: 20210617
  Receipt Date: 20210617
  Transmission Date: 20210717
  Serious: Yes (Other)
  Sender: FDA-Public Use
  Company Number: FR-ROCHE-2850541

PATIENT
  Sex: Female
  Weight: 60 kg

DRUGS (1)
  1. RIVOTRIL [Suspect]
     Active Substance: CLONAZEPAM
     Indication: HIV ASSOCIATED NEPHROPATHY
     Route: 065

REACTIONS (3)
  - Prescription form tampering [Unknown]
  - Seizure [Unknown]
  - Off label use [Unknown]
